FAERS Safety Report 9723808 (Version 1)
Quarter: 2013Q4

REPORT INFORMATION
  Report Type: Spontaneous
  Country: US (occurrence: US)
  Receive Date: 20131202
  Receipt Date: 20131202
  Transmission Date: 20140711
  Serious: Yes (Hospitalization)
  Sender: FDA-Public Use
  Company Number: US-ASTRAZENECA-2013SE85751

PATIENT
  Age: 171 Day
  Sex: Male
  Weight: 7.1 kg

DRUGS (1)
  1. SYNAGIS [Suspect]
     Indication: PREMATURE BABY
     Route: 030
     Dates: start: 20131106

REACTIONS (2)
  - Viral infection [Unknown]
  - Injection site erythema [Unknown]
